FAERS Safety Report 21150502 (Version 1)
Quarter: 2022Q3

REPORT INFORMATION
  Report Type: Spontaneous
  Country: US (occurrence: US)
  Receive Date: 20220729
  Receipt Date: 20220729
  Transmission Date: 20221027
  Serious: Yes (Hospitalization, Other)
  Sender: FDA-Public Use
  Company Number: US-NAPPMUNDI-GBR-2022-0100162

PATIENT
  Age: 54 Year
  Sex: Male

DRUGS (1)
  1. POVIDONE-IODINE [Suspect]
     Active Substance: POVIDONE-IODINE
     Indication: Pleurodesis
     Dosage: 40 ML OF POVIDONE-IODINE MIXED WITH 60 ML OF STERILE SALINE
     Route: 065

REACTIONS (4)
  - Respiratory failure [Recovered/Resolved]
  - Pneumonitis [Unknown]
  - Productive cough [Unknown]
  - Off label use [Unknown]
